FAERS Safety Report 6983569-2 (Version None)
Quarter: 2010Q3

REPORT INFORMATION
  Report Type: 
  Country: None (occurrence: None)
  Receive Date: 20100914
  Receipt Date: 20081013
  Transmission Date: 20110219
  Serious: No
  Sender: FDA-Public Use
  Company Number: US-WYE-H06389608

PATIENT
  Age: 66 Year
  Sex: Female
  Weight: 67.19 kg

DRUGS (5)
  1. ADVIL LIQUI-GELS [Suspect]
     Indication: ANALGESIC THERAPY
     Route: 048
     Dates: start: 20080401, end: 20081012
  2. PEPSIN [Concomitant]
  3. LEVOTHYROXINE [Concomitant]
  4. GABAPENTIN [Concomitant]
  5. PROPRANOLOL [Concomitant]

REACTIONS (1)
  - VAGINAL HAEMORRHAGE [None]
